FAERS Safety Report 4821743-1 (Version None)
Quarter: 2005Q4

REPORT INFORMATION
  Report Type: 
  Country: None (occurrence: None)
  Receive Date: 20051107
  Receipt Date: 20051025
  Transmission Date: 20060501
  Serious: Yes (Other)
  Sender: FDA-Public Use
  Company Number: JP-BRISTOL-MYERS SQUIBB COMPANY-13170204

PATIENT
  Age: 16 Year
  Sex: Female

DRUGS (4)
  1. ENDOXAN [Suspect]
     Indication: LYMPHOMA
     Dates: start: 20050929, end: 20050929
  2. DOXORUBICIN [Suspect]
     Indication: LYMPHOMA
     Dates: start: 20050929, end: 20050929
  3. PREDONINE [Suspect]
     Indication: LYMPHOMA
     Dates: start: 20050903, end: 20051020
  4. ONCOVIN [Suspect]
     Indication: LYMPHOMA
     Dates: start: 20050929, end: 20050929

REACTIONS (2)
  - BLINDNESS TRANSIENT [None]
  - REVERSIBLE POSTERIOR LEUKOENCEPHALOPATHY SYNDROME [None]
